FAERS Safety Report 13271538 (Version 1)
Quarter: 2017Q1

REPORT INFORMATION
  Report Type: Report from Study
  Country: None (occurrence: BR)
  Receive Date: 20170227
  Receipt Date: 20170227
  Transmission Date: 20170428
  Serious: Yes (Hospitalization)
  Sender: FDA-Public Use
  Company Number: BR-ABBVIE-16K-020-1818378-00

PATIENT
  Age: 26 Year
  Sex: Male
  Weight: 89 kg

DRUGS (15)
  1. ACTIVATED CHARCOAL [Concomitant]
     Active Substance: ACTIVATED CHARCOAL
     Indication: GASTRIC DISORDER
  2. FAMOTIDINE. [Concomitant]
     Active Substance: FAMOTIDINE
     Indication: PROPHYLAXIS
     Route: 048
     Dates: start: 2013
  3. HUMIRA [Suspect]
     Active Substance: ADALIMUMAB
     Route: 058
     Dates: start: 20170113
  4. AMITRIPTYLINE [Concomitant]
     Active Substance: AMITRIPTYLINE
     Indication: GASTRIC DISORDER
  5. ACTIVATED CHARCOAL [Concomitant]
     Active Substance: ACTIVATED CHARCOAL
     Indication: PROPHYLAXIS
     Route: 048
     Dates: start: 2013
  6. PROPANTHELINE BROMIDE. [Concomitant]
     Active Substance: PROPANTHELINE BROMIDE
     Indication: GASTRIC DISORDER
     Route: 048
  7. PROPANTHELINE BROMIDE. [Concomitant]
     Active Substance: PROPANTHELINE BROMIDE
     Indication: PROPHYLAXIS
  8. AZATHIOPRINE. [Concomitant]
     Active Substance: AZATHIOPRINE
     Indication: CROHN^S DISEASE
     Route: 048
     Dates: start: 201510
  9. SIMETHICONE (DIMETHICONE) [Concomitant]
     Active Substance: DIMETHICONE
     Indication: GASTRIC DISORDER
     Route: 048
  10. SIMETHICONE (DIMETHICONE) [Concomitant]
     Active Substance: DIMETHICONE
     Indication: PROPHYLAXIS
  11. HUMIRA [Suspect]
     Active Substance: ADALIMUMAB
     Indication: CROHN^S DISEASE
     Dosage: WEEK 0, LOADING DOSE
     Route: 058
     Dates: start: 20161118, end: 20161118
  12. AMITRIPTYLINE [Concomitant]
     Active Substance: AMITRIPTYLINE
     Indication: PROPHYLAXIS
     Route: 048
     Dates: start: 2013
  13. HUMIRA [Suspect]
     Active Substance: ADALIMUMAB
     Dosage: WEEK 2, LOADING DOSE
     Route: 058
     Dates: start: 201612, end: 201612
  14. APRAZ [Concomitant]
     Indication: SLEEP DISORDER THERAPY
     Route: 048
     Dates: start: 20161205
  15. FAMOTIDINE. [Concomitant]
     Active Substance: FAMOTIDINE
     Indication: GASTRIC DISORDER

REACTIONS (11)
  - Diarrhoea [Recovering/Resolving]
  - Insomnia [Recovering/Resolving]
  - Local swelling [Not Recovered/Not Resolved]
  - Localised infection [Not Recovered/Not Resolved]
  - Enterocutaneous fistula [Unknown]
  - Generalised erythema [Not Recovered/Not Resolved]
  - Stress [Recovering/Resolving]
  - Vomiting [Recovered/Resolved]
  - Erythema [Not Recovered/Not Resolved]
  - Abdominal pain [Not Recovered/Not Resolved]
  - Purulent discharge [Not Recovered/Not Resolved]

NARRATIVE: CASE EVENT DATE: 2016
